FAERS Safety Report 8361682-5 (Version None)
Quarter: 2012Q2

REPORT INFORMATION
  Report Type: 
  Country: None (occurrence: None)
  Receive Date: 20120515
  Receipt Date: 20120222
  Transmission Date: 20120825
  Serious: No
  Sender: FDA-Public Use
  Company Number: US-ABBOTT-12P-163-0907809-00

PATIENT
  Sex: Female
  Weight: 88.53 kg

DRUGS (5)
  1. PROPRANOLOL [Concomitant]
     Indication: PRODUCT USED FOR UNKNOWN INDICATION
  2. MYLAND [Concomitant]
     Indication: DIURETIC THERAPY
  3. ESTRADIOL [Concomitant]
     Indication: PRODUCT USED FOR UNKNOWN INDICATION
  4. PROMETRIUM [Suspect]
     Indication: PRODUCT USED FOR UNKNOWN INDICATION
  5. SPIRONOLACTONE [Concomitant]
     Indication: DIURETIC THERAPY

REACTIONS (3)
  - HEADACHE [None]
  - VAGINAL HAEMORRHAGE [None]
  - DRUG DOSE OMISSION [None]
